FAERS Safety Report 6579076-1 (Version None)
Quarter: 2010Q1

REPORT INFORMATION
  Report Type: 
  Country: None (occurrence: None)
  Receive Date: 20100203
  Receipt Date: 20100126
  Transmission Date: 20100710
  Serious: Yes (Other)
  Sender: FDA-Public Use
  Company Number: DSM-2009-01987

PATIENT
  Age: 78 Year
  Sex: Female

DRUGS (6)
  1. KONVERGE (OLMESARTAN MEDOXOMIL/AMLODIPINE BESILATE) (TABLET) [Suspect]
     Indication: HYPERTENSION
     Dosage: 40/10 MG (1 IN 1 D), ORAL
     Route: 048
     Dates: start: 20091101, end: 20091201
  2. PRAVITIN (PRAVASTATIN SODIUM) (10 MILLIGRAM) (PRAVASTATIN SODIUM) [Concomitant]
  3. XALATAN (LATANOPROST) (EYE DROPS) (LATANOPROST) [Concomitant]
  4. ASPIRIN NUSEAL (ACETYLSALICYLIC ACID) (75 MILLIGRAM) (ACETYLSALICYLIC [Concomitant]
  5. CO-DIOVAN (HYDROCHLOROTHIAZIDE, VALSARTAN) (HYDROCHLOROTHIAZIDE, VALSA [Concomitant]
  6. ZANEDIP (LERCANIDIPINE HYDROCHLORIDE) (LERCANIDIPINE HYDROCHLORIDE) [Concomitant]

REACTIONS (1)
  - HYPERSENSITIVITY [None]
